FAERS Safety Report 8009064-X (Version None)
Quarter: 2011Q4

REPORT INFORMATION
  Report Type: 
  Country: None (occurrence: None)
  Receive Date: 20111227
  Receipt Date: 20111219
  Transmission Date: 20120403
  Serious: No
  Sender: FDA-Public Use
  Company Number: US-PFIZER INC-2011308488

PATIENT
  Age: 74 Year
  Sex: Female

DRUGS (2)
  1. PROTONIX [Suspect]
     Indication: ABDOMINAL DISTENSION
  2. PROTONIX [Suspect]
     Indication: DYSPEPSIA
     Dosage: UNK

REACTIONS (1)
  - DRUG INEFFECTIVE [None]
